FAERS Safety Report 7407667-4 (Version None)
Quarter: 2011Q2

REPORT INFORMATION
  Report Type: 
  Country: None (occurrence: None)
  Receive Date: 20110412
  Receipt Date: 20101202
  Transmission Date: 20111010
  Serious: Yes (Life-Threatening, Other)
  Sender: FDA-Public Use
  Company Number: JP-BAYER-2010-000680

PATIENT
  Age: 47 Year
  Sex: Female

DRUGS (1)
  1. MAGNEVIST [Suspect]
     Indication: NUCLEAR MAGNETIC RESONANCE IMAGING
     Dosage: 15 ML, ONCE
     Route: 042
     Dates: start: 20101202, end: 20101202

REACTIONS (4)
  - HYPOTENSION [None]
  - DYSPNOEA [None]
  - RHINORRHOEA [None]
  - SNEEZING [None]
